FAERS Safety Report 18631427 (Version 1)
Quarter: 2020Q4

REPORT INFORMATION
  Report Type: Spontaneous
  Country: US (occurrence: US)
  Receive Date: 20201217
  Receipt Date: 20201217
  Transmission Date: 20210114
  Serious: No
  Sender: FDA-Public Use
  Company Number: US-ENDO PHARMACEUTICALS INC-2020-002035

PATIENT
  Age: 69 Year
  Sex: Male

DRUGS (1)
  1. XIAFLEX [Suspect]
     Active Substance: COLLAGENASE CLOSTRIDIUM HISTOLYTICUM
     Indication: PEYRONIE^S DISEASE
     Dosage: 0.58 MG, UNKNOWN; CYCLE ONE, INJECRTION ONE
     Route: 026
     Dates: start: 202002

REACTIONS (2)
  - Penile size reduced [Unknown]
  - Swelling [Unknown]

NARRATIVE: CASE EVENT DATE: 202002
